FAERS Safety Report 12912736 (Version 3)
Quarter: 2017Q4

REPORT INFORMATION
  Report Type: Report from Study
  Country: IT (occurrence: IT)
  Receive Date: 20161104
  Receipt Date: 20171004
  Transmission Date: 20180320
  Serious: Yes (Other)
  Sender: FDA-Public Use
  Company Number: IT-BRISTOL-MYERS SQUIBB COMPANY-BMS-2016-090762

PATIENT
  Age: 59 Year
  Sex: Female

DRUGS (1)
  1. NIVOLUMAB [Suspect]
     Active Substance: NIVOLUMAB
     Indication: NON-SMALL CELL LUNG CANCER
     Dosage: 3 MG/KG, Q2WK
     Route: 042

REACTIONS (19)
  - Leukopenia [Unknown]
  - Thrombocytopenia [Unknown]
  - Headache [Recovered/Resolved]
  - Decreased appetite [Unknown]
  - Rash [Recovered/Resolved]
  - Neutropenia [Unknown]
  - Tachycardia [Unknown]
  - Eyelid oedema [Recovered/Resolved]
  - Pruritus [Recovered/Resolved]
  - Productive cough [Unknown]
  - Weight decreased [Unknown]
  - Pneumonia [Unknown]
  - Visual acuity reduced [Unknown]
  - Dyspnoea exertional [Recovered/Resolved]
  - Eye pain [Unknown]
  - Somnolence [Unknown]
  - Influenza [Unknown]
  - Asthenia [Unknown]
  - Anaemia [Unknown]

NARRATIVE: CASE EVENT DATE: 20151014
